FAERS Safety Report 9712338 (Version 1)
Quarter: 2013Q4

REPORT INFORMATION
  Report Type: Spontaneous
  Country: CA (occurrence: CA)
  Receive Date: 20131126
  Receipt Date: 20131126
  Transmission Date: 20140711
  Serious: Yes (Hospitalization)
  Sender: FDA-Public Use
  Company Number: CA-ASTRAZENECA-2013SE85115

PATIENT
  Sex: Male

DRUGS (2)
  1. PALIVIZUMAB [Suspect]
     Route: 030
     Dates: start: 2012
  2. PALIVIZUMAB [Suspect]
     Route: 030
     Dates: start: 201311

REACTIONS (2)
  - Pneumonia [Recovered/Resolved]
  - Ear infection [Unknown]
